FAERS Safety Report 6346574-5 (Version None)
Quarter: 2009Q3

REPORT INFORMATION
  Report Type: 
  Country: None (occurrence: None)
  Receive Date: 20090909
  Receipt Date: 20090901
  Transmission Date: 20100115
  Serious: Yes (Other)
  Sender: FDA-Public Use
  Company Number: PHHY2009GB35532

PATIENT
  Sex: Female
  Weight: 60 kg

DRUGS (2)
  1. TRILEPTAL [Suspect]
     Indication: EPILEPSY
  2. OXCARBAZEPINE [Suspect]
     Indication: EPILEPSY
     Dosage: 300 MG, BID
     Route: 048
     Dates: start: 20090618

REACTIONS (5)
  - ANXIETY [None]
  - EPILEPSY [None]
  - NERVOUSNESS [None]
  - PANIC ATTACK [None]
  - TREMOR [None]
